FAERS Safety Report 7096063-8 (Version None)
Quarter: 2010Q4

REPORT INFORMATION
  Report Type: 
  Country: None (occurrence: None)
  Receive Date: 20101111
  Receipt Date: 20080321
  Transmission Date: 20110411
  Serious: No
  Sender: FDA-Public Use
  Company Number: US-KINGPHARMUSA00001-K200800355

PATIENT
  Age: 30 Year
  Sex: Female
  Weight: 83.447 kg

DRUGS (1)
  1. EPIPEN [Suspect]
     Dosage: UNK
     Dates: start: 20080321, end: 20080321

REACTIONS (4)
  - ACCIDENTAL EXPOSURE [None]
  - INJECTION SITE ANAESTHESIA [None]
  - INJECTION SITE COLDNESS [None]
  - INJECTION SITE PAIN [None]
